FAERS Safety Report 18822522 (Version 1)
Quarter: 2021Q1

REPORT INFORMATION
  Report Type: Spontaneous
  Country: US (occurrence: US)
  Receive Date: 20210202
  Receipt Date: 20210202
  Transmission Date: 20210419
  Serious: Yes (Other)
  Sender: FDA-Public Use
  Company Number: US-PACIRA-2021000046

PATIENT
  Age: 63 Year
  Sex: Female

DRUGS (11)
  1. CELEBREX [Concomitant]
     Active Substance: CELECOXIB
     Indication: POSTOPERATIVE CARE
     Dosage: 200 MG, FOR 2 WEEKS
     Route: 065
  2. FENTANYL. [Concomitant]
     Active Substance: FENTANYL
     Indication: PREOPERATIVE CARE
     Dosage: 50 MCG PRE?OP
     Route: 065
  3. VERSED [Concomitant]
     Active Substance: MIDAZOLAM HYDROCHLORIDE
     Indication: PREOPERATIVE CARE
     Dosage: 2 MG PRE?OP
     Route: 065
  4. ANCEF [Concomitant]
     Active Substance: CEFAZOLIN SODIUM
     Indication: PREOPERATIVE CARE
     Dosage: 1G PRE?OP
     Route: 042
  5. GABAPENTIN. [Concomitant]
     Active Substance: GABAPENTIN
     Indication: POSTOPERATIVE CARE
     Dosage: BID FOR 2 WEEKS
     Route: 065
  6. OXYCODONE [Concomitant]
     Active Substance: OXYCODONE
     Indication: POSTOPERATIVE CARE
     Dosage: OXYCONTIN 10 MG PRE?OP, OXYCODONE 5MG MULTIMODAL PROTOCOL
     Route: 065
  7. ACETAMINOPHEN. [Concomitant]
     Active Substance: ACETAMINOPHEN
     Indication: PREOPERATIVE CARE
     Dosage: 1000 MG MULTIMODAL PROTOCOL
     Route: 065
  8. ENTERIC?COATED ASPIRIN 325 MG [Concomitant]
     Indication: THROMBOSIS PROPHYLAXIS
     Dosage: BID
     Route: 065
  9. TRAMADOL. [Concomitant]
     Active Substance: TRAMADOL
     Indication: POSTOPERATIVE CARE
     Dosage: Q6H OR AS NEEDED
     Route: 065
  10. EXPAREL [Suspect]
     Active Substance: BUPIVACAINE
     Indication: POSTOPERATIVE ANALGESIA
     Dosage: 266 MG
     Route: 065
  11. VANC [Concomitant]
     Active Substance: VANCOMYCIN
     Indication: PREOPERATIVE CARE
     Dosage: 1G PRE?OP
     Route: 042

REACTIONS (2)
  - Fibula fracture [Unknown]
  - Peroneal nerve palsy [Unknown]
